FAERS Safety Report 11992816 (Version 2)
Quarter: 2016Q1

REPORT INFORMATION
  Report Type: Spontaneous
  Country: US (occurrence: US)
  Receive Date: 20160203
  Receipt Date: 20160203
  Transmission Date: 20160526
  Serious: No
  Sender: FDA-Public Use
  Company Number: US-UCBSA-2015024431

PATIENT
  Age: 32 Year
  Sex: Female
  Weight: 146.5 kg

DRUGS (7)
  1. KEPPRA XR [Suspect]
     Active Substance: LEVETIRACETAM
     Indication: SEIZURE
     Dosage: 750 MG 2 TABS TWICE DAILY, 2 TAB AM AND 2 TABS PM, 2X/DAY (BID), DAILY DOSE: 3000 MG
     Route: 048
     Dates: start: 2013
  2. FOLIC ACID. [Concomitant]
     Active Substance: FOLIC ACID
     Indication: SUPPLEMENTATION THERAPY
     Dosage: 1 MG, 2X/DAY (BID)
     Route: 048
     Dates: start: 201507
  3. KEPPRA [Suspect]
     Active Substance: LEVETIRACETAM
     Indication: SEIZURE
     Dosage: UNK
     Dates: start: 20130701
  4. OMEGA 3 FISH OIL [Concomitant]
     Active Substance: FISH OIL\OMEGA-3 FATTY ACIDS
     Indication: PREGNANCY
     Dosage: UNK
     Route: 048
     Dates: start: 201507
  5. LAMICTAL [Concomitant]
     Active Substance: LAMOTRIGINE
     Indication: SEIZURE
     Dosage: 1.5 TABS IN AM AND 1.5 TABS IN PM
     Route: 048
  6. PRENATAL VITAMINS [Concomitant]
     Active Substance: VITAMINS
     Indication: PREGNANCY
     Dosage: UNK
     Route: 048
     Dates: start: 201507
  7. METFORMIN [Concomitant]
     Active Substance: METFORMIN HYDROCHLORIDE
     Indication: PRODUCT USED FOR UNKNOWN INDICATION
     Dosage: 500 MG, 2X/DAY (BID)
     Dates: start: 201506, end: 2015

REACTIONS (7)
  - Off label use [Unknown]
  - Vomiting [Unknown]
  - Menstruation irregular [Unknown]
  - Pregnancy [Unknown]
  - Drug ineffective [Unknown]
  - Malaise [Unknown]
  - Seizure [Not Recovered/Not Resolved]

NARRATIVE: CASE EVENT DATE: 20130701
